FAERS Safety Report 22841624 (Version 2)
Quarter: 2024Q3

REPORT INFORMATION
  Report Type: Spontaneous
  Country: CH (occurrence: CH)
  Receive Date: 20230821
  Receipt Date: 20240725
  Transmission Date: 20241017
  Serious: Yes (Hospitalization, Other)
  Sender: MERCK
  Company Number: None

PATIENT
  Age: 59 Year
  Sex: Female

DRUGS (31)
  1. KEYTRUDA [Suspect]
     Active Substance: PEMBROLIZUMAB
     Indication: Lung adenocarcinoma
     Dosage: IN TOTAL
     Route: 040
     Dates: start: 20230315, end: 20230315
  2. KEYTRUDA [Suspect]
     Active Substance: PEMBROLIZUMAB
     Dosage: IN TOTAL
     Route: 040
     Dates: start: 20230413, end: 20230413
  3. KEYTRUDA [Suspect]
     Active Substance: PEMBROLIZUMAB
     Dosage: IN TOTAL
     Route: 040
     Dates: start: 20230504, end: 20230504
  4. KEYTRUDA [Suspect]
     Active Substance: PEMBROLIZUMAB
     Dosage: IN TOTAL
     Route: 040
     Dates: start: 20230526, end: 20230526
  5. KEYTRUDA [Suspect]
     Active Substance: PEMBROLIZUMAB
     Dosage: IN TOTAL
     Route: 040
     Dates: start: 20230623, end: 20230623
  6. KEYTRUDA [Suspect]
     Active Substance: PEMBROLIZUMAB
     Dosage: IN TOTAL
     Route: 040
     Dates: start: 20230714, end: 20230714
  7. KEYTRUDA [Suspect]
     Active Substance: PEMBROLIZUMAB
     Dosage: IN TOTAL
     Route: 040
     Dates: start: 20231030, end: 20231030
  8. KEYTRUDA [Suspect]
     Active Substance: PEMBROLIZUMAB
     Dosage: IN TOTAL
     Route: 040
     Dates: start: 20231120, end: 20231120
  9. KEYTRUDA [Suspect]
     Active Substance: PEMBROLIZUMAB
     Dosage: IN TOTAL
     Route: 040
     Dates: start: 20231211, end: 20231211
  10. PEMETREXED [Suspect]
     Active Substance: PEMETREXED
     Indication: Lung adenocarcinoma
     Dosage: IN TOTAL
     Route: 040
     Dates: start: 20230315, end: 20230315
  11. PEMETREXED [Suspect]
     Active Substance: PEMETREXED
     Dosage: IN TOTAL
     Route: 040
     Dates: start: 20230413, end: 20230413
  12. PEMETREXED [Suspect]
     Active Substance: PEMETREXED
     Dosage: IN TOTAL
     Route: 040
     Dates: start: 20230504, end: 20230504
  13. PEMETREXED [Suspect]
     Active Substance: PEMETREXED
     Dosage: IN TOTAL
     Route: 040
     Dates: start: 20230526, end: 20230526
  14. PEMETREXED [Suspect]
     Active Substance: PEMETREXED
     Dosage: IN TOTAL
     Route: 040
     Dates: start: 20230623, end: 20230623
  15. PEMETREXED [Suspect]
     Active Substance: PEMETREXED
     Dosage: IN TOTAL
     Route: 040
     Dates: start: 20230714, end: 20230714
  16. CARBOPLATIN [Concomitant]
     Active Substance: CARBOPLATIN
     Indication: Lung adenocarcinoma
     Dosage: UNK
     Dates: start: 20230315, end: 20230315
  17. CARBOPLATIN [Concomitant]
     Active Substance: CARBOPLATIN
     Dosage: UNK
     Dates: start: 20230413, end: 20230413
  18. CARBOPLATIN [Concomitant]
     Active Substance: CARBOPLATIN
     Dosage: UNK
     Dates: start: 20230504, end: 20230504
  19. CARBOPLATIN [Concomitant]
     Active Substance: CARBOPLATIN
     Dosage: UNK
     Dates: start: 20230526, end: 20230526
  20. DEXAMETHASONE SODIUM PHOSPHATE [Concomitant]
     Active Substance: DEXAMETHASONE PHOSPHATE\DEXAMETHASONE SODIUM PHOSPHATE
  21. SYMBICORT [Concomitant]
     Active Substance: BUDESONIDE\FORMOTEROL FUMARATE DIHYDRATE
  22. APIXABAN [Concomitant]
     Active Substance: APIXABAN
     Indication: Deep vein thrombosis
  23. LEUCOVORIN CALCIUM [Concomitant]
     Active Substance: LEUCOVORIN CALCIUM
  24. CYANOCOBALAMIN [Concomitant]
     Active Substance: CYANOCOBALAMIN
  25. BIOTIN [Concomitant]
     Active Substance: BIOTIN
  26. MOMETASONE FUROATE [Concomitant]
     Active Substance: MOMETASONE FUROATE
  27. PEGFILGRASTIM [Concomitant]
     Active Substance: PEGFILGRASTIM
  28. IOHEXOL [Concomitant]
     Active Substance: IOHEXOL
     Dosage: UNK
     Dates: start: 20230309
  29. IOHEXOL [Concomitant]
     Active Substance: IOHEXOL
     Dosage: UNK
     Dates: start: 20230511
  30. IOHEXOL [Concomitant]
     Active Substance: IOHEXOL
     Dosage: UNK
     Dates: start: 20230616
  31. IOHEXOL [Concomitant]
     Active Substance: IOHEXOL
     Dosage: UNK
     Dates: start: 20230727

REACTIONS (4)
  - Rash maculo-papular [Recovered/Resolved]
  - Febrile neutropenia [Recovered/Resolved]
  - Dermatitis bullous [Recovering/Resolving]
  - Agranulocytosis [Recovered/Resolved]

NARRATIVE: CASE EVENT DATE: 20230322
